FAERS Safety Report 23614486 (Version 1)
Quarter: 2024Q1

REPORT INFORMATION
  Report Type: Spontaneous
  Country: NL (occurrence: NL)
  Receive Date: 20240311
  Receipt Date: 20240311
  Transmission Date: 20240410
  Serious: Yes (Other)
  Sender: FDA-Public Use
  Company Number: None

PATIENT
  Age: 44 Year
  Sex: Female
  Weight: 65 kg

DRUGS (1)
  1. MIRTAZAPINE [Suspect]
     Active Substance: MIRTAZAPINE
     Indication: Product used for unknown indication
     Dosage: HALF TABLET PER NIGHT,  TABLET 15MG / BRAND NAME NOT SPECIFIED
     Route: 065
     Dates: start: 20240123

REACTIONS (3)
  - Palpitations [Unknown]
  - Product substitution issue [Unknown]
  - Arrhythmia [Unknown]
